FAERS Safety Report 7209239-3 (Version None)
Quarter: 2011Q1

REPORT INFORMATION
  Report Type: 
  Country: None (occurrence: None)
  Receive Date: 20110104
  Receipt Date: 20101228
  Transmission Date: 20110831
  Serious: Yes (Death)
  Sender: FDA-Public Use
  Company Number: A0900195A

PATIENT
  Age: 61 Year
  Sex: Female

DRUGS (1)
  1. HYCAMTIN [Suspect]
     Route: 065
     Dates: start: 20100130, end: 20100219

REACTIONS (1)
  - DISEASE PROGRESSION [None]
